FAERS Safety Report 4314661-9 (Version None)
Quarter: 2004Q1

REPORT INFORMATION
  Report Type: 
  Country: None (occurrence: None)
  Receive Date: 20040308
  Receipt Date: 20040223
  Transmission Date: 20041129
  Serious: Yes (Other)
  Sender: FDA-Public Use
  Company Number: 2004001060

PATIENT
  Age: 37 Year
  Sex: Female
  Weight: 70 kg

DRUGS (3)
  1. SERTRALINE HCL [Suspect]
     Indication: ANXIETY
     Dosage: 100 MG (DAILY), ORAL
     Route: 048
     Dates: start: 20031029
  2. SERTRALINE HCL [Suspect]
     Indication: DEPRESSION
     Dosage: 100 MG (DAILY), ORAL
     Route: 048
     Dates: start: 20031029
  3. DOTHIEPIN HYDROCHLORIDE [Concomitant]

REACTIONS (1)
  - SELF-INJURIOUS IDEATION [None]
